FAERS Safety Report 5238104-6 (Version None)
Quarter: 2007Q1

REPORT INFORMATION
  Report Type: 
  Country: None (occurrence: None)
  Receive Date: 20070215
  Receipt Date: 20070125
  Transmission Date: 20070707
  Serious: Yes (Hospitalization, Other)
  Sender: FDA-Public Use
  Company Number: GB-JNJFOC-20070106685

PATIENT
  Age: 39 Year
  Sex: Male

DRUGS (1)
  1. DAKTACORT [Suspect]
     Indication: RASH
     Route: 061
     Dates: start: 20070102, end: 20070110

REACTIONS (2)
  - PRURITUS GENERALISED [None]
  - RASH GENERALISED [None]
